FAERS Safety Report 5310131-X (Version None)
Quarter: 2007Q2

REPORT INFORMATION
  Report Type: 
  Country: None (occurrence: None)
  Receive Date: 20070427
  Receipt Date: 20070426
  Transmission Date: 20071010
  Serious: Yes (Hospitalization)
  Sender: FDA-Public Use
  Company Number: CA-GLAXOSMITHKLINE-A0648759A

PATIENT
  Age: 59 Year
  Sex: Female

DRUGS (1)
  1. TUMS E-X TABLETS, TROPICAL FRUIT [Suspect]
     Dosage: 2TAB SINGLE DOSE
     Route: 048
     Dates: start: 20070420, end: 20070420

REACTIONS (6)
  - BLOOD PRESSURE INCREASED [None]
  - DYSPNOEA [None]
  - HYPERSENSITIVITY [None]
  - PHARYNGEAL OEDEMA [None]
  - SENSATION OF FOREIGN BODY [None]
  - STRESS [None]
